FAERS Safety Report 9918665 (Version 1)
Quarter: 2014Q1

REPORT INFORMATION
  Report Type: Spontaneous
  Country: US (occurrence: US)
  Receive Date: 20140224
  Receipt Date: 20140224
  Transmission Date: 20141002
  Serious: Yes (Other)
  Sender: FDA-Public Use
  Company Number: US-BEH-2014040763

PATIENT
  Age: 45 Year
  Sex: Female

DRUGS (2)
  1. IMMUNOGLOBULIN [Suspect]
     Indication: HYPOGAMMAGLOBULINAEMIA
     Dosage: MONTHLY INFUSION
  2. IMMUNOGLOBULIN [Suspect]
     Indication: HYPOGAMMAGLOBULINAEMIA
     Dosage: MONTHLY INFUSION

REACTIONS (6)
  - Hypertensive emergency [Unknown]
  - Thrombosis [Unknown]
  - Subclavian vein thrombosis [Unknown]
  - Sepsis [Unknown]
  - Nephrotic syndrome [Recovering/Resolving]
  - Glomerulonephritis membranous [Recovering/Resolving]
